FAERS Safety Report 12398251 (Version 1)
Quarter: 2016Q2

REPORT INFORMATION
  Report Type: Report from Study
  Country: DK (occurrence: DE)
  Receive Date: 20160524
  Receipt Date: 20160524
  Transmission Date: 20160815
  Serious: Yes (Other)
  Sender: FDA-Public Use
  Company Number: DE-FRI-1000084806

PATIENT
  Age: 29 Year
  Sex: Female

DRUGS (7)
  1. TAVOR / LORAZEPAM [Concomitant]
     Dosage: 2 MG
     Route: 048
     Dates: start: 20160213, end: 20160213
  2. TAVOR / LORAZEPAM [Concomitant]
     Dosage: 1 MG
     Route: 048
     Dates: start: 20160214
  3. ESCITALOPRAM [Suspect]
     Active Substance: ESCITALOPRAM OXALATE
     Indication: PRODUCT USED FOR UNKNOWN INDICATION
     Dosage: 10 MG
     Route: 048
     Dates: start: 20160205, end: 20160205
  4. TAVOR / LORAZEPAM [Concomitant]
     Dosage: 4 MG
     Route: 048
     Dates: start: 20160205, end: 20160211
  5. TAVOR / LORAZEPAM [Concomitant]
     Dosage: 3 MG
     Route: 048
     Dates: start: 20160212, end: 20160212
  6. ESCITALOPRAM [Suspect]
     Active Substance: ESCITALOPRAM OXALATE
     Dosage: 20 MG
     Route: 048
     Dates: start: 20160206, end: 20160212
  7. VITAMINE B1 [Concomitant]
     Indication: PRODUCT USED FOR UNKNOWN INDICATION
     Dosage: 600 MG
     Route: 048
     Dates: start: 20160205

REACTIONS (2)
  - Rash [Recovered/Resolved]
  - Dermatitis allergic [Recovered/Resolved]

NARRATIVE: CASE EVENT DATE: 20160212
